FAERS Safety Report 6309507-3 (Version None)
Quarter: 2009Q3

REPORT INFORMATION
  Report Type: 
  Country: None (occurrence: None)
  Receive Date: 20090814
  Receipt Date: 20090804
  Transmission Date: 20100115
  Serious: Yes (Hospitalization)
  Sender: FDA-Public Use
  Company Number: SG-JNJFOC-20090802119

PATIENT
  Age: 42 Year
  Sex: Female

DRUGS (8)
  1. PARACETAMOL [Suspect]
  2. PARACETAMOL [Suspect]
     Indication: DRUG USE FOR UNKNOWN INDICATION
     Dosage: NON-TOXIC QUANTITIES
  3. DISHWASHING DETERGENT [Suspect]
     Indication: POISONING DELIBERATE
  4. LAUNDRY DETERGENT [Suspect]
     Indication: POISONING DELIBERATE
  5. EPILIM CHRONO [Concomitant]
  6. FLUOXETINE [Concomitant]
     Dosage: THERAPEUTIC DOSES
  7. FOLIC ACID [Concomitant]
  8. LORAZEPAM [Concomitant]

REACTIONS (4)
  - EAR DISORDER [None]
  - INCORRECT DOSE ADMINISTERED [None]
  - PYREXIA [None]
  - RENAL FAILURE ACUTE [None]
